FAERS Safety Report 20564693 (Version 1)
Quarter: 2022Q1

REPORT INFORMATION
  Report Type: Spontaneous
  Country: JP (occurrence: JP)
  Receive Date: 20220308
  Receipt Date: 20220308
  Transmission Date: 20220423
  Serious: Yes (Other)
  Sender: FDA-Public Use
  Company Number: JP-SUN PHARMACEUTICAL INDUSTRIES LTD-2022RR-329099

PATIENT
  Age: 77 Year
  Sex: Male

DRUGS (5)
  1. OXALIPLATIN [Suspect]
     Active Substance: OXALIPLATIN
     Indication: Gastrooesophageal cancer
     Dosage: 85 MILLIGRAM/SQ. METER, UNK
     Route: 065
  2. LEUCOVORIN CALCIUM [Suspect]
     Active Substance: LEUCOVORIN CALCIUM
     Indication: Gastrooesophageal cancer
     Dosage: 200 MILLIGRAM/KILOGRAM, UNK
     Route: 065
  3. CISPLATIN [Suspect]
     Active Substance: CISPLATIN
     Indication: Gastrooesophageal cancer
     Dosage: 80 MILLIGRAM/SQ. METER, UNK
     Route: 065
  4. FLUOROURACIL [Suspect]
     Active Substance: FLUOROURACIL
     Indication: Gastrooesophageal cancer
     Dosage: 800 MILLIGRAM/SQ. METER, UNK
     Route: 065
  5. FLUOROURACIL [Suspect]
     Active Substance: FLUOROURACIL
     Dosage: 2800 MILLIGRAM/SQ. METER, UNK
     Route: 065

REACTIONS (2)
  - Inappropriate antidiuretic hormone secretion [Recovered/Resolved]
  - Disease progression [Unknown]
